FAERS Safety Report 7649787-5 (Version None)
Quarter: 2011Q3

REPORT INFORMATION
  Report Type: 
  Country: None (occurrence: None)
  Receive Date: 20110727
  Receipt Date: 20110713
  Transmission Date: 20111222
  Serious: Yes (Other)
  Sender: FDA-Public Use
  Company Number: 20110534

PATIENT
  Sex: Female

DRUGS (2)
  1. SODIUM CHLORIDE [Concomitant]
  2. VASOPRESSIN INJECTION, USP (1020-25) 20 UNITS/ML [Suspect]
     Indication: HYSTERECTOMY
     Dosage: 20 UNITS ENDOCERVICAL
     Route: 005
     Dates: start: 20110406, end: 20110406

REACTIONS (5)
  - THERAPEUTIC PRODUCT INEFFECTIVE [None]
  - IRON DEFICIENCY ANAEMIA [None]
  - PROCEDURAL COMPLICATION [None]
  - ANAEMIA POSTOPERATIVE [None]
  - HAEMORRHAGE [None]
